FAERS Safety Report 17303888 (Version 2)
Quarter: 2020Q2

REPORT INFORMATION
  Report Type: Spontaneous
  Country: US (occurrence: US)
  Receive Date: 20200122
  Receipt Date: 20200421
  Transmission Date: 20200713
  Serious: No
  Sender: FDA-Public Use
  Company Number: US-ACTELION-A-US2020-200676

PATIENT
  Sex: Female

DRUGS (3)
  1. OXYGEN. [Concomitant]
     Active Substance: OXYGEN
     Dosage: 1 L
  2. OPSUMIT [Suspect]
     Active Substance: MACITENTAN
     Indication: SCLERODERMA
     Dosage: 10 MG
     Route: 048
  3. OXYGEN. [Concomitant]
     Active Substance: OXYGEN
     Dosage: 2 L

REACTIONS (7)
  - Dyspnoea exertional [Unknown]
  - Nasal congestion [Unknown]
  - Fatigue [Not Recovered/Not Resolved]
  - Oropharyngeal pain [Unknown]
  - Chest pain [Unknown]
  - Headache [Unknown]
  - Dyspnoea [Not Recovered/Not Resolved]
